FAERS Safety Report 19082774 (Version 1)
Quarter: 2021Q1

REPORT INFORMATION
  Report Type: Spontaneous
  Country: US (occurrence: US)
  Receive Date: 20210331
  Receipt Date: 20210331
  Transmission Date: 20210420
  Serious: Yes (Hospitalization)
  Sender: FDA-Public Use
  Company Number: None

PATIENT
  Age: 52 Year
  Sex: Male

DRUGS (2)
  1. VANCOMYCIN (VANVOMYCIN HCL 1GM/VIL INJ) [Suspect]
     Active Substance: VANCOMYCIN HYDROCHLORIDE
     Indication: STAPHYLOCOCCAL INFECTION
     Dosage: ?          OTHER ROUTE:IV?
     Route: 042
     Dates: start: 20201204, end: 20201227
  2. VANCOMYCIN (VANVOMYCIN HCL 1GM/VIL INJ) [Suspect]
     Active Substance: VANCOMYCIN HYDROCHLORIDE
     Indication: BACTERAEMIA
     Dosage: ?          OTHER ROUTE:IV?
     Route: 042
     Dates: start: 20201204, end: 20201227

REACTIONS (4)
  - Eosinophilia [None]
  - Drug eruption [None]
  - Rash [None]
  - Red man syndrome [None]

NARRATIVE: CASE EVENT DATE: 20201224
